FAERS Safety Report 9160415 (Version 1)
Quarter: 2013Q1

REPORT INFORMATION
  Report Type: Spontaneous
  Country: US (occurrence: US)
  Receive Date: 20130313
  Receipt Date: 20130313
  Transmission Date: 20140127
  Serious: Yes (Hospitalization)
  Sender: FDA-Public Use
  Company Number: US-ROCHE-1201206

PATIENT
  Sex: Female

DRUGS (3)
  1. PERJETA [Suspect]
     Indication: BREAST CANCER METASTATIC
     Route: 065
  2. HERCEPTIN [Suspect]
     Indication: BREAST CANCER METASTATIC
     Route: 065
  3. TAXOTERE [Suspect]
     Indication: BREAST CANCER METASTATIC
     Route: 065

REACTIONS (2)
  - Colitis ulcerative [Unknown]
  - Diarrhoea [Unknown]
